FAERS Safety Report 6494749-7 (Version None)
Quarter: 2009Q4

REPORT INFORMATION
  Report Type: 
  Country: None (occurrence: None)
  Receive Date: 20091214
  Receipt Date: 20090320
  Transmission Date: 20100525
  Serious: No
  Sender: FDA-Public Use
  Company Number: US-BRISTOL-MYERS SQUIBB COMPANY-14554877

PATIENT
  Age: 14 Year
  Sex: Male
  Weight: 66 kg

DRUGS (1)
  1. ABILIFY [Suspect]
     Indication: OBSESSIVE-COMPULSIVE DISORDER
     Dates: start: 20081112, end: 20081119

REACTIONS (3)
  - AGITATION [None]
  - AKATHISIA [None]
  - RESTLESSNESS [None]
